FAERS Safety Report 17508928 (Version 2)
Quarter: 2020Q1

REPORT INFORMATION
  Report Type: Spontaneous
  Country: DE (occurrence: DE)
  Receive Date: 20200306
  Receipt Date: 20200312
  Transmission Date: 20200409
  Serious: Yes (Other)
  Sender: FDA-Public Use
  Company Number: DE-PFIZER INC-2020095275

PATIENT

DRUGS (1)
  1. CYTOTEC [Suspect]
     Active Substance: MISOPROSTOL
     Indication: LABOUR INDUCTION
     Dosage: 0.25 DF, ACCORDING TO THE MIDWIFE, ^QUARTER TABLET^ WAS ADMINISTERED FIRST, THEN NO MEMORY DUE LABOR
     Route: 064
     Dates: start: 20151009, end: 20151010

REACTIONS (2)
  - Foetal heart rate decreased [Unknown]
  - Foetal exposure during delivery [Unknown]

NARRATIVE: CASE EVENT DATE: 201510
